FAERS Safety Report 21993647 (Version 1)
Quarter: 2023Q1

REPORT INFORMATION
  Report Type: Spontaneous
  Country: US (occurrence: US)
  Receive Date: 20230215
  Receipt Date: 20230215
  Transmission Date: 20230418
  Serious: No
  Sender: FDA-Public Use
  Company Number: US-BRISTOL-MYERS SQUIBB COMPANY-2023-021536

PATIENT
  Age: 56 Year
  Sex: Female

DRUGS (1)
  1. POMALYST [Suspect]
     Active Substance: POMALIDOMIDE
     Indication: Product used for unknown indication
     Dosage: FREQUENCY-DAILY FOR 21 DAYS
     Route: 048
     Dates: start: 20220128

REACTIONS (2)
  - Cough [Recovered/Resolved]
  - Nasopharyngitis [Recovered/Resolved]
